FAERS Safety Report 24980952 (Version 1)
Quarter: 2025Q1

REPORT INFORMATION
  Report Type: Spontaneous
  Country: US (occurrence: None)
  Receive Date: 20250215
  Receipt Date: 20250215
  Transmission Date: 20250408
  Serious: No
  Sender: FDA-CTU
  Company Number: None

PATIENT
  Age: 3 Year
  Sex: Female
  Weight: 15.3 kg

DRUGS (1)
  1. OSELTAMIVIR [Suspect]
     Active Substance: OSELTAMIVIR
     Indication: Influenza
     Dosage: OTHER QUANTITY : 1 1;?FREQUENCY : TWICE A DAY;?
     Route: 048
     Dates: start: 20250214, end: 20250214

REACTIONS (2)
  - Vomiting [None]
  - Condition aggravated [None]

NARRATIVE: CASE EVENT DATE: 20250214
